FAERS Safety Report 5712255-1 (Version None)
Quarter: 2008Q2

REPORT INFORMATION
  Report Type: 
  Country: None (occurrence: None)
  Receive Date: 20080417
  Receipt Date: 20080407
  Transmission Date: 20081010
  Serious: Yes (Hospitalization)
  Sender: FDA-Public Use
  Company Number: 233271J08USA

PATIENT
  Age: 55 Year
  Sex: Female
  Weight: 71.6683 kg

DRUGS (4)
  1. REBIF [Suspect]
     Indication: MULTIPLE SCLEROSIS
     Dosage: 22 MCG, 2 IN 1 WEEKS, SUBCUTANEOUS
     Route: 058
     Dates: start: 20060407, end: 20080301
  2. ALEEV (NAPROXEN SODIUM) [Concomitant]
  3. IMITREX [Concomitant]
  4. NEURONTIN [Concomitant]

REACTIONS (6)
  - BODY TEMPERATURE INCREASED [None]
  - FALL [None]
  - MIGRAINE [None]
  - MUSCLE SPASMS [None]
  - MUSCULAR WEAKNESS [None]
  - URINARY TRACT INFECTION [None]
